FAERS Safety Report 25774894 (Version 2)
Quarter: 2025Q3

REPORT INFORMATION
  Report Type: Spontaneous
  Country: GB (occurrence: GB)
  Receive Date: 20250908
  Receipt Date: 20250911
  Transmission Date: 20251020
  Serious: Yes (Death)
  Sender: MYLAN
  Company Number: GB-MYLANLABS-2025M1076470

PATIENT
  Sex: Female

DRUGS (1)
  1. CLOZARIL [Suspect]
     Active Substance: CLOZAPINE
     Indication: Product used for unknown indication

REACTIONS (1)
  - Death [Fatal]
